FAERS Safety Report 19159779 (Version 1)
Quarter: 2021Q2

REPORT INFORMATION
  Report Type: Report from Study
  Country: CO (occurrence: CO)
  Receive Date: 20210420
  Receipt Date: 20210420
  Transmission Date: 20210717
  Serious: Yes (Hospitalization, Other)
  Sender: FDA-Public Use
  Company Number: NVSC2020CO158359

PATIENT
  Age: 46 Year
  Sex: Female
  Weight: 70 kg

DRUGS (1)
  1. AFINITOR [Suspect]
     Active Substance: EVEROLIMUS
     Indication: GASTROENTEROPANCREATIC NEUROENDOCRINE TUMOUR DISEASE
     Dosage: 10 MG, QD
     Route: 048
     Dates: start: 2018, end: 202006

REACTIONS (6)
  - Drug ineffective [Unknown]
  - Haemoglobin decreased [Unknown]
  - Diarrhoea haemorrhagic [Recovered/Resolved]
  - Haemorrhage [Unknown]
  - Haematemesis [Unknown]
  - Pain [Unknown]

NARRATIVE: CASE EVENT DATE: 20200528
